FAERS Safety Report 25807947 (Version 1)
Quarter: 2025Q3

REPORT INFORMATION
  Report Type: Spontaneous
  Country: EU (occurrence: EU)
  Receive Date: 20250916
  Receipt Date: 20250916
  Transmission Date: 20251020
  Serious: Yes (Death, Other)
  Sender: Haleon PLC
  Company Number: EU-EMA-20141022-ahujaprd-103314160

PATIENT
  Age: 81 Year
  Sex: Female

DRUGS (6)
  1. DICLOFENAC [Suspect]
     Active Substance: DICLOFENAC
     Indication: Joint destruction
  2. DICLOFENAC [Suspect]
     Active Substance: DICLOFENAC
     Indication: Arthritis
  3. METAMIZOLE [Suspect]
     Active Substance: METAMIZOLE
     Indication: Joint destruction
  4. METAMIZOLE [Suspect]
     Active Substance: METAMIZOLE
     Indication: Arthritis
  5. METHOTREXATE [Suspect]
     Active Substance: METHOTREXATE
     Indication: Arthritis
  6. METHOTREXATE [Suspect]
     Active Substance: METHOTREXATE
     Indication: Joint destruction

REACTIONS (12)
  - Pneumonia [Fatal]
  - White blood cell count decreased [Unknown]
  - Agranulocytosis [Unknown]
  - Bone marrow disorder [Unknown]
  - Gastritis haemorrhagic [Unknown]
  - Skin haemorrhage [Unknown]
  - Mucosal haemorrhage [Unknown]
  - Drug interaction [Unknown]
  - Ecchymosis [Unknown]
  - Haemorrhagic diathesis [Unknown]
  - Myelosuppression [Fatal]
  - Haemorrhage subcutaneous [Unknown]
